FAERS Safety Report 5531503-4 (Version None)
Quarter: 2007Q4

REPORT INFORMATION
  Report Type: 
  Country: None (occurrence: None)
  Receive Date: 20071128
  Receipt Date: 20071128
  Transmission Date: 20080405
  Serious: No
  Sender: FDA-Public Use
  Company Number: None

PATIENT
  Age: 72 Year
  Sex: Male
  Weight: 90.7194 kg

DRUGS (1)
  1. AMBIEN CR [Suspect]
     Indication: SURGERY
     Dosage: 12.5 MG ONE AT BEDTIME PO
     Route: 048
     Dates: start: 20071011, end: 20071011

REACTIONS (5)
  - ABNORMAL SLEEP-RELATED EVENT [None]
  - AMNESIA [None]
  - BELLIGERENCE [None]
  - HALLUCINATION, VISUAL [None]
  - SCREAMING [None]
